FAERS Safety Report 25726975 (Version 1)
Quarter: 2025Q3

REPORT INFORMATION
  Report Type: Spontaneous
  Country: US (occurrence: None)
  Receive Date: 20250825
  Receipt Date: 20250825
  Transmission Date: 20251020
  Serious: No
  Sender: FDA-CTU
  Company Number: None

PATIENT
  Age: 65 Year
  Sex: Male
  Weight: 81 kg

DRUGS (5)
  1. NEMOLIZUMAB [Suspect]
     Active Substance: NEMOLIZUMAB
     Indication: Dermatitis atopic
     Route: 030
     Dates: start: 20250819, end: 20250819
  2. GINKGO [Concomitant]
     Active Substance: GINKGO
  3. FISH OIL [Concomitant]
     Active Substance: FISH OIL
  4. LECITHIN, SOYBEAN [Concomitant]
     Active Substance: LECITHIN, SOYBEAN
  5. ASPIRIN [Concomitant]
     Active Substance: ASPIRIN

REACTIONS (2)
  - Myalgia [None]
  - Loss of personal independence in daily activities [None]

NARRATIVE: CASE EVENT DATE: 20250822
